FAERS Safety Report 18242856 (Version 1)
Quarter: 2020Q3

REPORT INFORMATION
  Report Type: Spontaneous
  Country: US (occurrence: US)
  Receive Date: 20200908
  Receipt Date: 20200908
  Transmission Date: 20201103
  Serious: Yes (Death, Other)
  Sender: FDA-Public Use
  Company Number: US-AMGEN-USASP2020141850

PATIENT
  Age: 36 Year
  Sex: Female

DRUGS (9)
  1. THIOTEPA. [Concomitant]
     Active Substance: THIOTEPA
     Indication: LYMPHOMA
     Dosage: UNK
  2. BUSULFAN. [Concomitant]
     Active Substance: BUSULFAN
     Indication: LYMPHOMA
     Dosage: UNK
  3. ACYCLOVIR [ACICLOVIR] [Concomitant]
     Active Substance: ACYCLOVIR
     Indication: INFECTION PROPHYLAXIS
     Dosage: 5 MILLIGRAM/KILOGRAM, EVERY 8 OR 12 HOURS
     Route: 042
  4. CYCLOSPORINE. [Concomitant]
     Active Substance: CYCLOSPORINE
     Indication: PROPHYLAXIS AGAINST GRAFT VERSUS HOST DISEASE
     Dosage: 3 MILLIGRAM/KILOGRAM, QD (STARING DAY?2 OF TRANSPLANT)
     Route: 042
  5. VANCOMYCIN [Concomitant]
     Active Substance: VANCOMYCIN
     Indication: INFECTION PROPHYLAXIS
     Dosage: 1 GRAM, QD
     Route: 042
  6. FILGRASTIM [Suspect]
     Active Substance: FILGRASTIM
     Indication: PRODUCT USED FOR UNKNOWN INDICATION
     Dosage: 5 MICROGRAM/KILOGRAM, QD (TILL ENGRAFTMENT)
     Route: 058
  7. CYCLOPHOSPHAMIDE. [Concomitant]
     Active Substance: CYCLOPHOSPHAMIDE
     Indication: LYMPHOMA
     Dosage: UNK
  8. FLUCONAZOLE. [Concomitant]
     Active Substance: FLUCONAZOLE
     Indication: INFECTION PROPHYLAXIS
     Dosage: 200 MILLIGRAM, BID
     Route: 042
  9. METHYLPREDNISOLONE. [Concomitant]
     Active Substance: METHYLPREDNISOLONE
     Indication: PROPHYLAXIS AGAINST GRAFT VERSUS HOST DISEASE
     Dosage: 0.5 MILLIGRAM/KILOGRAM, BID (ON DAYS 5 TO 28 OF TRANSPLANT)
     Route: 042

REACTIONS (2)
  - Sepsis [Fatal]
  - Pneumonia parainfluenzae viral [Fatal]
